FAERS Safety Report 6809163 (Version 15)
Quarter: 2013Q3

REPORT INFORMATION
  Report Type: Spontaneous
  Country: US (occurrence: US)
  Receive Date: 20081112
  Receipt Date: 20130808
  Transmission Date: 20140515
  Serious: Yes (Death, Hospitalization, Other)
  Sender: FDA-Public Use
  Company Number: PHEH2008US09962

PATIENT
  Age: 50 Year
  Sex: Female

DRUGS (31)
  1. ZOMETA [Suspect]
  2. MULTIVITAMINS [Concomitant]
  3. CALCIUM [Concomitant]
  4. DEXAMETHASONE [Concomitant]
  5. ADRIAMYCIN [Concomitant]
  6. CYTOXAN [Concomitant]
  7. THIOPENTAL [Concomitant]
  8. TAMOXIFEN [Concomitant]
  9. METHOTREXATE [Concomitant]
  10. DECADRON                                /CAN/ [Concomitant]
  11. PEPCID [Concomitant]
  12. HYDRODIURIL [Concomitant]
  13. AVASTIN [Concomitant]
  14. ALOXI [Concomitant]
  15. NAVELBINE ^ASTA MEDICA^ [Concomitant]
  16. RADIATION THERAPY [Concomitant]
  17. CEFAZOLIN [Concomitant]
  18. CLINDAMYCIN [Concomitant]
  19. KETOROLAC [Concomitant]
  20. HYDROMORPHONE [Concomitant]
  21. ONDASETRON [Concomitant]
  22. ACETAMINOPHEN [Concomitant]
  23. TYLENOL [Concomitant]
  24. CEPHALEXIN [Concomitant]
  25. CODEINE [Concomitant]
  26. LOVENOX [Concomitant]
  27. ZOFRAN [Concomitant]
  28. KEFLEX [Concomitant]
  29. ENOXAPARIN [Concomitant]
  30. ZOLPIDEM [Concomitant]
  31. BENADRYL [Concomitant]

REACTIONS (63)
  - Neoplasm progression [Fatal]
  - Meningitis [Fatal]
  - Dizziness [Fatal]
  - Headache [Fatal]
  - Confusional state [Fatal]
  - Vomiting [Fatal]
  - Dysarthria [Fatal]
  - Hydrocephalus [Fatal]
  - Gait disturbance [Fatal]
  - Depressed level of consciousness [Fatal]
  - Metastases to bone [Fatal]
  - Metastases to meninges [Fatal]
  - Metastases to lung [Fatal]
  - Metastases to liver [Fatal]
  - Mental status changes [Fatal]
  - Unresponsive to stimuli [Fatal]
  - Malignant neoplasm progression [Fatal]
  - Metastases to central nervous system [Fatal]
  - Carcinoembryonic antigen increased [Unknown]
  - Pleural effusion [Unknown]
  - Osteonecrosis of jaw [Unknown]
  - General physical health deterioration [Unknown]
  - Pain [Unknown]
  - Anxiety [Unknown]
  - Decreased interest [Unknown]
  - Arthralgia [Unknown]
  - Upper respiratory tract infection [Unknown]
  - Bronchitis [Unknown]
  - Joint swelling [Unknown]
  - Blood glucose increased [Unknown]
  - Blood alkaline phosphatase increased [Unknown]
  - Blood lactate dehydrogenase increased [Unknown]
  - Hepatic haemorrhage [Unknown]
  - Spondylolysis [Unknown]
  - Osteopenia [Unknown]
  - Hepatic cyst [Unknown]
  - Lung disorder [Unknown]
  - Dyspnoea [Unknown]
  - Nasopharyngitis [Unknown]
  - Sputum discoloured [Unknown]
  - Bronchiectasis [Unknown]
  - Pulmonary fibrosis [Unknown]
  - Pneumothorax [Unknown]
  - Atelectasis [Unknown]
  - Emphysema [Unknown]
  - Interstitial lung disease [Unknown]
  - Pulmonary congestion [Unknown]
  - Aphasia [Unknown]
  - Thrombocytopenia [Unknown]
  - Urinary incontinence [Unknown]
  - Pyrexia [Unknown]
  - Chills [Unknown]
  - Muscular weakness [Unknown]
  - Back pain [Unknown]
  - Constipation [Unknown]
  - Vision blurred [Unknown]
  - Anaemia [Unknown]
  - Insomnia [Unknown]
  - Leukoencephalopathy [Unknown]
  - Encephalomyelitis [Unknown]
  - Contusion [Unknown]
  - Tendonitis [Unknown]
  - Synovial cyst [Unknown]
